FAERS Safety Report 16540227 (Version 1)
Quarter: 2019Q3

REPORT INFORMATION
  Report Type: Spontaneous
  Country: US (occurrence: US)
  Receive Date: 20190524
  Receipt Date: 20190524
  Transmission Date: 20191004
  Serious: No
  Sender: FDA-Public Use
  Company Number: None

PATIENT

DRUGS (4)
  1. ACYCLOVIR. [Concomitant]
     Active Substance: ACYCLOVIR
  2. RYDAPT [Suspect]
     Active Substance: MIDOSTAURIN
     Dates: start: 201905
  3. NOXAFIL [Concomitant]
     Active Substance: POSACONAZOLE
  4. AMBIEN [Concomitant]
     Active Substance: ZOLPIDEM TARTRATE

REACTIONS (2)
  - Labelled drug-drug interaction medication error [None]
  - Off label use [None]

NARRATIVE: CASE EVENT DATE: 20190524
